FAERS Safety Report 6601924-7 (Version None)
Quarter: 2010Q1

REPORT INFORMATION
  Report Type: 
  Country: None (occurrence: None)
  Receive Date: 20100225
  Receipt Date: 20100215
  Transmission Date: 20100710
  Serious: Yes (Death)
  Sender: FDA-Public Use
  Company Number: US-JNJFOC-20100208044

PATIENT
  Sex: Female
  Weight: 113.4 kg

DRUGS (7)
  1. FENTANYL [Suspect]
     Indication: PAIN
  2. ACETAMINOPHEN [Suspect]
  3. ACETAMINOPHEN [Suspect]
     Indication: PAIN
  4. AMITRIPTYLINE HCL [Suspect]
     Indication: DRUG USE FOR UNKNOWN INDICATION
  5. CARISOPRODOL [Suspect]
     Indication: DRUG USE FOR UNKNOWN INDICATION
  6. METHAMPHETAMINE HYDROCHLORIDE [Suspect]
     Indication: DRUG USE FOR UNKNOWN INDICATION
  7. OPIATES [Suspect]
     Indication: DRUG USE FOR UNKNOWN INDICATION

REACTIONS (2)
  - COMPLETED SUICIDE [None]
  - DRUG TOXICITY [None]
